FAERS Safety Report 9642224 (Version 2)
Quarter: 2013Q4

REPORT INFORMATION
  Report Type: Spontaneous
  Country: CH (occurrence: CH)
  Receive Date: 20131024
  Receipt Date: 20131024
  Transmission Date: 20140711
  Serious: Yes (Other)
  Sender: FDA-Public Use
  Company Number: CH-009507513-1308CHE013874

PATIENT
  Age: 23 Year
  Sex: Female
  Weight: 61 kg

DRUGS (2)
  1. NUVARING [Suspect]
     Indication: CONTRACEPTION
     Dosage: STRENGTH:11.7/2.7 MG, Q3W
     Route: 067
     Dates: start: 20110519, end: 20110601
  2. NUVARING [Suspect]
     Dosage: STRENGTH:11.7/2.7 MG, Q3W
     Route: 067
     Dates: start: 201108

REACTIONS (5)
  - Hydrometra [Recovered/Resolved]
  - Uterine dilation and curettage [Unknown]
  - Uterine haemorrhage [Recovered/Resolved]
  - Menorrhagia [Recovered/Resolved]
  - Menometrorrhagia [Recovered/Resolved]
